FAERS Safety Report 7061780-2 (Version None)
Quarter: 2010Q4

REPORT INFORMATION
  Report Type: 
  Country: None (occurrence: None)
  Receive Date: 20101026
  Receipt Date: 20101015
  Transmission Date: 20110411
  Serious: Yes (Other)
  Sender: FDA-Public Use
  Company Number: LT-JNJFOC-20100807727

PATIENT
  Sex: Female
  Weight: 61 kg

DRUGS (3)
  1. USTEKINUMAB [Suspect]
     Indication: PSORIASIS
     Route: 058
  2. USTEKINUMAB [Suspect]
     Route: 058
  3. METHOTREXATE [Suspect]
     Indication: PSORIASIS

REACTIONS (1)
  - KERATOACANTHOMA [None]
